FAERS Safety Report 14825607 (Version 1)
Quarter: 2018Q2

REPORT INFORMATION
  Report Type: Spontaneous
  Country: NL (occurrence: NL)
  Receive Date: 20180430
  Receipt Date: 20180430
  Transmission Date: 20180711
  Serious: Yes (Other)
  Sender: FDA-Public Use
  Company Number: NL-TEVA-2018-NL-887261

PATIENT
  Age: 73 Year
  Sex: Male
  Weight: 78 kg

DRUGS (1)
  1. LEVOFLOXACINE TABLET OMHULD 500MG OMHULDE TABLET, 500 MG (MILLIGRAM) [Suspect]
     Active Substance: LEVOFLOXACIN
     Indication: PSEUDOMONAS INFECTION
     Dosage: 1000 MILLIGRAM DAILY;
     Route: 065
     Dates: start: 20180208, end: 20180220

REACTIONS (6)
  - Erythema multiforme [Recovering/Resolving]
  - Myalgia [Recovering/Resolving]
  - Tendonitis [Recovering/Resolving]
  - Peripheral vascular disorder [Recovering/Resolving]
  - Toxic skin eruption [Recovering/Resolving]
  - Headache [Recovering/Resolving]

NARRATIVE: CASE EVENT DATE: 20180213
